FAERS Safety Report 4369977-7 (Version None)
Quarter: 2004Q2

REPORT INFORMATION
  Report Type: 
  Country: None (occurrence: None)
  Receive Date: 20040526
  Receipt Date: 20031224
  Transmission Date: 20050107
  Serious: Yes (Hospitalization)
  Sender: FDA-Public Use
  Company Number: USA031255386

PATIENT
  Sex: Female

DRUGS (3)
  1. ZYPREXA [Suspect]
     Indication: MANIA
     Dosage: 5 MG/DAY
  2. PROZAC [Concomitant]
  3. ACETAMINOPHEN AND HYDROCODONE BITARTRATE [Concomitant]

REACTIONS (3)
  - FLUID RETENTION [None]
  - MANIA [None]
  - WEIGHT INCREASED [None]
